FAERS Safety Report 10705598 (Version 1)
Quarter: 2015Q1

REPORT INFORMATION
  Report Type: Spontaneous
  Country: US (occurrence: US)
  Receive Date: 20150112
  Receipt Date: 20150112
  Transmission Date: 20150721
  Serious: No
  Sender: FDA-Public Use
  Company Number: US-GLAXOSMITHKLINE-A1077751A

PATIENT

DRUGS (15)
  1. PROGRAF [Concomitant]
     Active Substance: TACROLIMUS\TACROLIMUS ANHYDROUS
  2. LASIX [Concomitant]
     Active Substance: FUROSEMIDE
  3. MIRALAX [Concomitant]
     Active Substance: POLYETHYLENE GLYCOL 3350
  4. AMOXICILLIN. [Concomitant]
     Active Substance: AMOXICILLIN
  5. RELAFEN [Concomitant]
     Active Substance: NABUMETONE
  6. DOCUSATE [Concomitant]
     Active Substance: DOCUSATE
  7. VALCYTE [Concomitant]
     Active Substance: VALGANCICLOVIR HYDROCHLORIDE
  8. PROTONIX [Concomitant]
     Active Substance: PANTOPRAZOLE SODIUM
  9. NORCO [Concomitant]
     Active Substance: ACETAMINOPHEN\HYDROCODONE BITARTRATE
  10. FLUDROCORTISONE [Concomitant]
     Active Substance: FLUDROCORTISONE
  11. NOVOLOG [Concomitant]
     Active Substance: INSULIN ASPART
  12. LEVEMIR [Concomitant]
     Active Substance: INSULIN DETEMIR
  13. NYSTATIN. [Concomitant]
     Active Substance: NYSTATIN
  14. PROMACTA [Suspect]
     Active Substance: ELTROMBOPAG OLAMINE
     Indication: CHRONIC HEPATITIS C
     Route: 048
     Dates: start: 20140211
  15. BACTRIM [Concomitant]
     Active Substance: SULFAMETHOXAZOLE\TRIMETHOPRIM

REACTIONS (2)
  - Drug ineffective [Unknown]
  - Ill-defined disorder [Unknown]
